FAERS Safety Report 8533466-6 (Version None)
Quarter: 2012Q3

REPORT INFORMATION
  Report Type: 
  Country: None (occurrence: None)
  Receive Date: 20120724
  Receipt Date: 20120713
  Transmission Date: 20120928
  Serious: Yes (Other)
  Sender: FDA-Public Use
  Company Number: JP-VERTEX PHARMACEUTICALS INC.-AE-2012-010552

PATIENT
  Age: 52 Year
  Sex: Male

DRUGS (3)
  1. TELAVIC (TELAPREVIR) [Suspect]
     Route: 048
     Dates: start: 20120709
  2. PEGINTERFERON ALFA-2B [Concomitant]
     Route: 058
     Dates: start: 20120709
  3. REBETOL [Concomitant]
     Route: 048
     Dates: start: 20120709

REACTIONS (1)
  - NEUTROPHIL COUNT [None]
